FAERS Safety Report 14639443 (Version 2)
Quarter: 2018Q2

REPORT INFORMATION
  Report Type: Spontaneous
  Country: US (occurrence: US)
  Receive Date: 20180315
  Receipt Date: 20180418
  Transmission Date: 20180711
  Serious: No
  Sender: FDA-Public Use
  Company Number: US-ASTRAZENECA-2018SE20918

PATIENT
  Age: 470 Month
  Sex: Male
  Weight: 88.5 kg

DRUGS (3)
  1. ANASTROZOLE. [Suspect]
     Active Substance: ANASTROZOLE
     Indication: HORMONE THERAPY
     Route: 048
     Dates: start: 201712, end: 201802
  2. BENADRYL [Concomitant]
     Active Substance: DIPHENHYDRAMINE HYDROCHLORIDE
  3. ANASTROZOLE. [Suspect]
     Active Substance: ANASTROZOLE
     Indication: TOXICITY TO VARIOUS AGENTS
     Route: 048
     Dates: start: 201712, end: 201802

REACTIONS (19)
  - Pruritus [Recovering/Resolving]
  - Fatigue [Unknown]
  - Confusional state [Unknown]
  - Irritability [Not Recovered/Not Resolved]
  - Mood swings [Not Recovered/Not Resolved]
  - Hypersensitivity [Unknown]
  - Product use issue [Unknown]
  - Emotional distress [Unknown]
  - Insomnia [Unknown]
  - Rash [Recovering/Resolving]
  - Metabolic disorder [Unknown]
  - Lethargy [Unknown]
  - Off label use [Unknown]
  - Feeling abnormal [Unknown]
  - Palpitations [Unknown]
  - Anxiety [Not Recovered/Not Resolved]
  - Cold sweat [Unknown]
  - Abnormal behaviour [Unknown]
  - Rash macular [Recovering/Resolving]

NARRATIVE: CASE EVENT DATE: 201712
